FAERS Safety Report 12156481 (Version 2)
Quarter: 2016Q2

REPORT INFORMATION
  Report Type: Report from Study
  Country: US (occurrence: US)
  Receive Date: 20160307
  Receipt Date: 20160411
  Transmission Date: 20160815
  Serious: Yes (Disabling, Other)
  Sender: FDA-Public Use
  Company Number: US-GILEAD-2016-0201883

PATIENT
  Age: 82 Year
  Sex: Female
  Weight: 52.15 kg

DRUGS (11)
  1. MEVACOR [Concomitant]
     Active Substance: LOVASTATIN
     Dosage: 40 MG, QHS
     Route: 048
     Dates: start: 20160127
  2. RANOLAZINE [Suspect]
     Active Substance: RANOLAZINE
     Indication: ARTERIOSPASM CORONARY
  3. REGLAN [Concomitant]
     Active Substance: METOCLOPRAMIDE HYDROCHLORIDE
     Dosage: 5 MG, UNK
     Route: 048
     Dates: start: 20141003
  4. MULTIVITAMIN                       /00097801/ [Concomitant]
     Active Substance: VITAMINS
     Dosage: 1 TABLET DAILY
     Route: 048
  5. PROTONIX                           /00661201/ [Concomitant]
     Active Substance: OMEPRAZOLE
     Dosage: 40 MG, QD
     Route: 048
     Dates: start: 20151214
  6. OCUVITE LUTEIN                     /06812801/ [Concomitant]
     Dosage: 2 TABLETS DAILY
     Route: 048
  7. NITROSTAT [Concomitant]
     Active Substance: NITROGLYCERIN
     Indication: CHEST PAIN
     Dosage: 0.4 MG, 1 TABLE UNDER THE TONGUE EVERY 5 MINUTES AS NEEDED
     Route: 060
     Dates: start: 20160302
  8. ECOTRIN [Concomitant]
     Active Substance: ASPIRIN
     Dosage: 81 MG, QD
     Route: 048
     Dates: start: 20151013
  9. RANOLAZINE [Suspect]
     Active Substance: RANOLAZINE
     Indication: ANGINA PECTORIS
     Dosage: 500 MG, BID
     Route: 048
     Dates: start: 20160205
  10. CELEBREX [Concomitant]
     Active Substance: CELECOXIB
     Dosage: 100 MG, QD
     Route: 048
     Dates: start: 20150924
  11. AMARYL [Concomitant]
     Active Substance: GLIMEPIRIDE
     Indication: DIABETES MELLITUS
     Dosage: 1 MG, QD
     Route: 048
     Dates: start: 20150922

REACTIONS (1)
  - Macular degeneration [Unknown]
